FAERS Safety Report 10433656 (Version 1)
Quarter: 2014Q3

REPORT INFORMATION
  Report Type: Spontaneous
  Country: US (occurrence: None)
  Receive Date: 20140904
  Receipt Date: 20140904
  Transmission Date: 20150326
  Serious: No
  Sender: FDA-Public Use
  Company Number: None

PATIENT
  Age: 55 Year
  Sex: Female

DRUGS (13)
  1. SIMVASTATIN. [Concomitant]
     Active Substance: SIMVASTATIN
  2. ALPRAZOLAM. [Concomitant]
     Active Substance: ALPRAZOLAM
  3. ATENOLOL. [Concomitant]
     Active Substance: ATENOLOL
  4. SOVALDI [Suspect]
     Active Substance: SOFOSBUVIR
     Indication: HEPATITIS C
     Route: 048
     Dates: start: 20140618, end: 20140901
  5. HUMULIN N [Concomitant]
     Active Substance: INSULIN HUMAN
  6. ABILIFY [Concomitant]
     Active Substance: ARIPIPRAZOLE
  7. GABAPENTIN. [Concomitant]
     Active Substance: GABAPENTIN
  8. AMITRIPTYLINE [Concomitant]
     Active Substance: AMITRIPTYLINE
  9. FENOFIBRATE. [Concomitant]
     Active Substance: FENOFIBRATE
  10. OXYCODONE [Concomitant]
     Active Substance: OXYCODONE
  11. OMPERAZOLE [Concomitant]
     Active Substance: OMEPRAZOLE
  12. LISINOPRIL. [Concomitant]
     Active Substance: LISINOPRIL
  13. PREDNISONE. [Concomitant]
     Active Substance: PREDNISONE

REACTIONS (3)
  - Mental impairment [None]
  - Feeling abnormal [None]
  - Extra dose administered [None]

NARRATIVE: CASE EVENT DATE: 20140831
